FAERS Safety Report 15026897 (Version 1)
Quarter: 2018Q2

REPORT INFORMATION
  Report Type: Spontaneous
  Country: ES (occurrence: ES)
  Receive Date: 20180619
  Receipt Date: 20180619
  Transmission Date: 20180711
  Serious: Yes (Other)
  Sender: FDA-Public Use
  Company Number: ES-ROCHE-2139235

PATIENT
  Age: 14 Year
  Sex: Male

DRUGS (2)
  1. RANIBIZUMAB. [Suspect]
     Active Substance: RANIBIZUMAB
     Indication: MACULAR OEDEMA
  2. RANIBIZUMAB. [Suspect]
     Active Substance: RANIBIZUMAB
     Indication: EXUDATIVE RETINOPATHY
     Dosage: THE PATIENT RECIEVED LAST DOSE IN NOV/2014
     Route: 050

REACTIONS (2)
  - Visual acuity reduced [Unknown]
  - Macular oedema [Unknown]
